FAERS Safety Report 8990985 (Version 1)
Quarter: 2012Q4

REPORT INFORMATION
  Report Type: Spontaneous
  Country: US (occurrence: None)
  Receive Date: 20121220
  Receipt Date: 20121220
  Transmission Date: 20130627
  Serious: Yes (Hospitalization)
  Sender: FDA-Public Use
  Company Number: 2010-202

PATIENT
  Age: 53 Year
  Sex: Female

DRUGS (2)
  1. PRIALT [Suspect]
     Indication: PAIN
     Dosage: once/hour
     Route: 037
  2. DILAUDID [Suspect]
     Indication: PAIN
     Dosage: once/hour
     Route: 037

REACTIONS (5)
  - Formication [None]
  - Thinking abnormal [None]
  - Psychotic disorder [None]
  - Amnesia [None]
  - Cognitive disorder [None]
